FAERS Safety Report 20471313 (Version 1)
Quarter: 2022Q1

REPORT INFORMATION
  Report Type: Spontaneous
  Country: US (occurrence: None)
  Receive Date: 20220211
  Receipt Date: 20220211
  Transmission Date: 20220423
  Serious: Yes (Hospitalization)
  Sender: FDA-Public Use
  Company Number: None

PATIENT
  Age: 55 Year
  Sex: Female
  Weight: 213.2 kg

DRUGS (8)
  1. CAPECITABINE [Concomitant]
     Active Substance: CAPECITABINE
     Dosage: FREQUENCY : TWICE A DAY;?
     Route: 048
     Dates: start: 20211027
  2. CLARITIN [Suspect]
     Active Substance: LORATADINE
  3. ELIQUIS [Concomitant]
     Active Substance: APIXABAN
  4. FLONASE [Concomitant]
     Active Substance: FLUTICASONE PROPIONATE
  5. LISINOPRIL [Concomitant]
     Active Substance: LISINOPRIL
  6. PROCHLORPERAZINE [Concomitant]
  7. VENTOLIN HFA [Concomitant]
  8. ZOFRAN [Concomitant]

REACTIONS (1)
  - Colitis [None]
